FAERS Safety Report 6198587-4 (Version None)
Quarter: 2009Q2

REPORT INFORMATION
  Report Type: 
  Country: None (occurrence: None)
  Receive Date: 20090518
  Receipt Date: 20090514
  Transmission Date: 20091009
  Serious: Yes (Hospitalization)
  Sender: FDA-Public Use
  Company Number: CERZ-1000615

PATIENT
  Age: 30 Year
  Sex: Female
  Weight: 88.5 kg

DRUGS (2)
  1. CEREZYME [Suspect]
     Indication: GAUCHER'S DISEASE
     Dosage: 2400 U, Q2W, INTRAVENOUS
     Route: 042
     Dates: start: 19990731
  2. UNSPECIFIED ANTIBIOTIC (UNSPECIFIED ANTIBIOTIC) [Concomitant]

REACTIONS (6)
  - ABORTION SPONTANEOUS [None]
  - DRUG EXPOSURE DURING PREGNANCY [None]
  - HYPERTENSION [None]
  - INFUSION RELATED REACTION [None]
  - PREGNANCY [None]
  - PROTEINURIA [None]
